FAERS Safety Report 18725535 (Version 2)
Quarter: 2021Q1

REPORT INFORMATION
  Report Type: Report from Study
  Country: CA (occurrence: CA)
  Receive Date: 20210111
  Receipt Date: 20210115
  Transmission Date: 20210419
  Serious: Yes (Death, Hospitalization)
  Sender: FDA-Public Use
  Company Number: CA-ASTRAZENECA-2021A002836

PATIENT
  Age: 75 Year
  Sex: Male

DRUGS (13)
  1. CALQUENCE [Suspect]
     Active Substance: ACALABRUTINIB
     Indication: CHRONIC LYMPHOCYTIC LEUKAEMIA
     Route: 048
     Dates: start: 20201112
  2. ATENOLOL. [Concomitant]
     Active Substance: ATENOLOL
     Indication: CARDIAC FAILURE CONGESTIVE
     Dosage: 50.0MG UNKNOWN
  3. FUROSEMIDE. [Concomitant]
     Active Substance: FUROSEMIDE
     Indication: OEDEMA
     Dosage: 40.0MG UNKNOWN
  4. ROSUVASTATIN. [Concomitant]
     Active Substance: ROSUVASTATIN
     Indication: BLOOD CHOLESTEROL ABNORMAL
     Dosage: 5.0MG UNKNOWN
  5. TAMSULOSIN [Concomitant]
     Active Substance: TAMSULOSIN
     Indication: PROSTATOMEGALY
     Dosage: 0.4MG UNKNOWN
  6. EPREX [Concomitant]
     Active Substance: ERYTHROPOIETIN
     Indication: ANAEMIA
  7. GABAPENTIN. [Concomitant]
     Active Substance: GABAPENTIN
  8. MIRTAZAPINE. [Concomitant]
     Active Substance: MIRTAZAPINE
     Indication: DEPRESSION
     Dosage: 30.0MG UNKNOWN
  9. HYDROMORPHONE [Concomitant]
     Active Substance: HYDROMORPHONE
     Indication: PAIN
  10. TRESIBA [Concomitant]
     Active Substance: INSULIN DEGLUDEC
     Indication: DIABETES MELLITUS
  11. HUMALOG [Concomitant]
     Active Substance: INSULIN LISPRO
     Indication: DIABETES MELLITUS
  12. CLOPIDOGREL [Concomitant]
     Active Substance: CLOPIDOGREL BISULFATE
     Indication: CORONARY ARTERY DISEASE
     Dosage: 75.0MG UNKNOWN
  13. SPIRIVA RESPIMAT [Concomitant]
     Active Substance: TIOTROPIUM BROMIDE
     Indication: CHRONIC OBSTRUCTIVE PULMONARY DISEASE
     Dosage: 25.0MG UNKNOWN

REACTIONS (3)
  - Cellulitis [Fatal]
  - Pneumonia [Fatal]
  - COVID-19 [Fatal]
